FAERS Safety Report 7591593 (Version 6)
Quarter: 2014Q4

REPORT INFORMATION
  Report Type: Report from Study
  Country: JP (occurrence: JP)
  Receive Date: 20100917
  Receipt Date: 20141113
  Transmission Date: 20150529
  Serious: Yes (Disabling, Other)
  Sender: FDA-Public Use
  Company Number: PHHY2010JP59737

PATIENT
  Age: 62 Year
  Sex: Female

DRUGS (10)
  1. AMN107 [Suspect]
     Active Substance: NILOTINIB
     Indication: CHRONIC MYELOID LEUKAEMIA
     Dosage: UNK
     Route: 065
     Dates: start: 20000701
  2. DIOVAN [Concomitant]
     Active Substance: VALSARTAN
     Indication: HYPERTENSION
     Dosage: 80 MG, UNK
     Route: 048
     Dates: start: 20100405
  3. AMN107 [Suspect]
     Active Substance: NILOTINIB
     Dosage: 400 MG, QD
     Route: 048
     Dates: start: 20101001
  4. LENDORMIN [Concomitant]
     Active Substance: BROTIZOLAM
     Indication: HYPERTENSION
  5. GLUCOBAY [Concomitant]
     Active Substance: ACARBOSE
     Indication: DIABETES MELLITUS
     Dosage: 300 MG, UNK
     Route: 048
     Dates: start: 20100405
  6. AMN107 [Suspect]
     Active Substance: NILOTINIB
     Indication: CHRONIC MYELOID LEUKAEMIA
     Dosage: 800 MG, QD
     Route: 048
     Dates: start: 20100405, end: 20100620
  7. LENDORMIN [Concomitant]
     Active Substance: BROTIZOLAM
     Indication: CHRONIC MYELOID LEUKAEMIA
     Dosage: 0.25 MG, UNK
     Route: 048
     Dates: start: 20100405, end: 2010
  8. AMN107 [Suspect]
     Active Substance: NILOTINIB
     Dosage: 400 MG, QD
     Route: 048
     Dates: start: 20100621, end: 20100823
  9. NORVASC [Concomitant]
     Active Substance: AMLODIPINE BESYLATE
     Indication: PRODUCT USED FOR UNKNOWN INDICATION
     Dosage: 5 MG, UNK
     Route: 048
     Dates: start: 20100405
  10. AMARYL [Concomitant]
     Active Substance: GLIMEPIRIDE
     Indication: PRODUCT USED FOR UNKNOWN INDICATION
     Dosage: 1 MG, UNK
     Route: 065
     Dates: start: 20100405

REACTIONS (7)
  - Hepatic function abnormal [Unknown]
  - Blood bilirubin increased [Recovered/Resolved]
  - Bilirubin conjugated increased [Recovered/Resolved]
  - Acute myocardial infarction [Recovered/Resolved with Sequelae]
  - Hyperglycaemia [Recovering/Resolving]
  - Arrhythmia supraventricular [Unknown]
  - Eosinophil count increased [Not Recovered/Not Resolved]

NARRATIVE: CASE EVENT DATE: 20100426
